FAERS Safety Report 13088741 (Version 1)
Quarter: 2017Q1

REPORT INFORMATION
  Report Type: Spontaneous
  Country: GB (occurrence: GB)
  Receive Date: 20170105
  Receipt Date: 20170105
  Transmission Date: 20170428
  Serious: Yes (Other)
  Sender: FDA-Public Use
  Company Number: GB-PFIZER INC-2016605737

PATIENT
  Age: 31 Year
  Sex: Female
  Weight: 90 kg

DRUGS (11)
  1. METHYLCELLULOSE [Concomitant]
     Active Substance: METHYLCELLULOSES
     Dosage: 3 DF, TWICE A DAY
     Dates: start: 20160310
  2. SALAZOPYRIN [Suspect]
     Active Substance: SULFASALAZINE
     Dosage: UNK
     Route: 048
     Dates: start: 20161111
  3. SULFASALAZINE. [Suspect]
     Active Substance: SULFASALAZINE
     Dosage: 1 EVERY DAY FOR 7 DAYS, THEN 1 TO BE TAKEN TWICE
     Dates: start: 20160831, end: 20161111
  4. CODEINE PHOSPHATE [Concomitant]
     Active Substance: CODEINE PHOSPHATE
     Dosage: TAKE ONE TO TWO TABLETS UP TO 4 TIMES A DAY.
     Dates: start: 20151211
  5. KETOPROFEN. [Concomitant]
     Active Substance: KETOPROFEN
     Dosage: UNK, APPLY TWO TO FOUR TIMES DAILY
     Dates: start: 20161206
  6. PARACETAMOL [Concomitant]
     Active Substance: ACETAMINOPHEN
     Dosage: UNK, TAKE ONE OR TWO TABLETS UP TO FOUR TIMES A DAY
     Dates: start: 20151211
  7. CERELLE [Concomitant]
     Active Substance: DESOGESTREL
     Dosage: 1 DF, 1X/DAY
     Dates: start: 20151211
  8. AMITRIPTYLINE HYDROCHLORIDE. [Concomitant]
     Active Substance: AMITRIPTYLINE HYDROCHLORIDE
     Dosage: 1 DF, 1X/DAY, AT NIGHT FOR 5-7 DAYS
     Dates: start: 20161005
  9. CITALOPRAM [Concomitant]
     Active Substance: CITALOPRAM HYDROBROMIDE
     Dosage: 1 DF, 1X/DAY
     Dates: start: 20151211
  10. IBUPROFEN. [Concomitant]
     Active Substance: IBUPROFEN
     Dosage: 1 DF, 3X/DAY
     Dates: start: 20161005, end: 20161015
  11. RANITIDINE. [Concomitant]
     Active Substance: RANITIDINE
     Dosage: 1 DF, 2X/DAY
     Dates: start: 20151211

REACTIONS (1)
  - Haemolysis [Unknown]

NARRATIVE: CASE EVENT DATE: 20161219
